FAERS Safety Report 9160940 (Version 2)
Quarter: 2013Q2

REPORT INFORMATION
  Report Type: Report from Study
  Country: DE (occurrence: DE)
  Receive Date: 20130313
  Receipt Date: 20130402
  Transmission Date: 20140414
  Serious: Yes (Hospitalization)
  Sender: FDA-Public Use
  Company Number: DE-PFIZER INC-2012128409

PATIENT
  Age: 71 Year
  Sex: Female
  Weight: 65 kg

DRUGS (4)
  1. TORISEL [Suspect]
     Indication: OVARIAN CANCER
     Dosage: 25 MG, UNK
     Route: 042
     Dates: start: 20120417
  2. BISOPROLOL [Concomitant]
     Indication: HYPERTENSION
     Dosage: 3.75 MG, UNK
     Dates: start: 2010
  3. PALLADON [Concomitant]
     Indication: PAIN
     Dosage: 16 MG, UNK
     Dates: start: 2012
  4. L-THYROXIN [Concomitant]
     Indication: HYPOTHYROIDISM
     Dosage: 50 UG, UNK
     Dates: start: 1998

REACTIONS (1)
  - Venous thrombosis [Not Recovered/Not Resolved]
